FAERS Safety Report 8402402-5 (Version None)
Quarter: 2012Q2

REPORT INFORMATION
  Report Type: 
  Country: None (occurrence: None)
  Receive Date: 20120601
  Receipt Date: 20120524
  Transmission Date: 20120825
  Serious: Yes (Hospitalization)
  Sender: FDA-Public Use
  Company Number: SG-PFIZER INC-2011278853

PATIENT
  Age: 65 Year
  Sex: Male
  Weight: 58.2 kg

DRUGS (10)
  1. CISPLATIN [Suspect]
     Indication: LYMPHOMA
     Dosage: 82 MG, 1X/DAY
     Route: 042
     Dates: start: 20111027, end: 20111027
  2. RITUXIMAB [Suspect]
     Indication: LYMPHOMA
     Dosage: 600 MG, 1X/DAY
     Route: 042
     Dates: start: 20111027, end: 20111027
  3. ACICLOVIR [Concomitant]
     Indication: PROPHYLAXIS
     Dosage: 400 MG, 2X/DAY
     Route: 048
     Dates: start: 20111029, end: 20111105
  4. RANITIDINE [Concomitant]
     Indication: PROPHYLAXIS
     Dosage: 150 MG, 2X/DAY
     Route: 048
     Dates: start: 20111029, end: 20111105
  5. INOTUZUMAB OZOGAMICIN [Suspect]
     Indication: LYMPHOMA
     Dosage: 1.3 MG, 1X/DAY
     Route: 042
     Dates: start: 20111028, end: 20111028
  6. DEXAMETHASONE ACETATE [Suspect]
     Indication: LYMPHOMA
     Dosage: 40 MG, 1X/DAY FOR 4 DAYS
     Route: 048
     Dates: start: 20111027, end: 20111030
  7. BIOTENE MOUTHWASH [Concomitant]
     Indication: PROPHYLAXIS
     Dosage: 10 ML, 4X/DAY
     Route: 049
     Dates: start: 20111029, end: 20111105
  8. FLUTICASONE PROPIONATE/SALMETEROL [Concomitant]
     Indication: ASTHMA
     Dosage: 2 PUFFS (50/25) TWICE DAILY
  9. GEMCITABINE [Suspect]
     Indication: LYMPHOMA
     Dosage: 820 MG, 1X/DAY
     Route: 042
     Dates: start: 20111027
  10. CIPROFLOXACIN [Concomitant]
     Indication: PROPHYLAXIS
     Dosage: 500 MG, 2X/DAY
     Route: 048
     Dates: start: 20111029, end: 20111105

REACTIONS (1)
  - FEBRILE NEUTROPENIA [None]
